FAERS Safety Report 22630089 (Version 5)
Quarter: 2025Q3

REPORT INFORMATION
  Report Type: Spontaneous
  Country: EU (occurrence: EU)
  Receive Date: 20230622
  Receipt Date: 20250802
  Transmission Date: 20251021
  Serious: Yes (Hospitalization, Other)
  Sender: ALEXION PHARMACEUTICALS
  Company Number: 2023A137384

PATIENT
  Age: 91 Year
  Sex: Female

DRUGS (5)
  1. QUETIAPINE FUMARATE [Suspect]
     Active Substance: QUETIAPINE FUMARATE
     Indication: Antipsychotic therapy
     Dosage: 225 MILLIGRAM, QD
  2. PREDNISOLONE [Suspect]
     Active Substance: PREDNISOLONE
     Indication: Product used for unknown indication
     Route: 065
  3. METHYLPREDNISOLONE [Concomitant]
     Active Substance: METHYLPREDNISOLONE
     Indication: Renal impairment
     Dosage: 40 MILLIGRAM, QD
     Route: 065
  4. PIPERACILLIN AND TAZOBACTAM [Concomitant]
     Active Substance: PIPERACILLIN SODIUM\TAZOBACTAM SODIUM
     Indication: Renal impairment
     Route: 065
  5. OXYGEN [Concomitant]
     Active Substance: OXYGEN
     Route: 065

REACTIONS (5)
  - Pulmonary toxicity [Recovering/Resolving]
  - Toxicity to various agents [Recovering/Resolving]
  - Pneumonia bacterial [Recovering/Resolving]
  - Interstitial lung disease [Recovered/Resolved]
  - Condition aggravated [Recovering/Resolving]
